FAERS Safety Report 8523924 (Version 3)
Quarter: 2013Q2

REPORT INFORMATION
  Report Type: Spontaneous
  Country: US (occurrence: None)
  Receive Date: 20120413
  Receipt Date: 20130514
  Transmission Date: 20140414
  Serious: Yes (Hospitalization, Disabling, Other)
  Sender: FDA-Public Use
  Company Number: ACO_29982_2012

PATIENT
  Age: 52 Year
  Sex: Female

DRUGS (6)
  1. AMPYRA [Suspect]
     Indication: MULTIPLE SCLEROSIS
     Dosage: 10 MG, BID, ORAL
     Route: 048
     Dates: start: 201112, end: 201203
  2. GILENYA (FINGOLIMOD HYDROCHLORIDE) [Concomitant]
  3. LOPRESSOR (METOPROLOL TARTRATE) [Concomitant]
  4. LASIX (FUROSEMIDE) [Concomitant]
  5. ATIVAN (LORAZEPAM) [Concomitant]
  6. BACLOFEN (BACLOFEN) [Concomitant]

REACTIONS (9)
  - Abasia [None]
  - Incontinence [None]
  - Basilar migraine [None]
  - Multiple sclerosis relapse [None]
  - Malaise [None]
  - Balance disorder [None]
  - Movement disorder [None]
  - Headache [None]
  - Gait disturbance [None]
